FAERS Safety Report 14751387 (Version 1)
Quarter: 2018Q2

REPORT INFORMATION
  Report Type: Spontaneous
  Country: GB (occurrence: GB)
  Receive Date: 20180412
  Receipt Date: 20180412
  Transmission Date: 20180711
  Serious: Yes (Death, Other)
  Sender: FDA-Public Use
  Company Number: GB-B.I. PHARMACEUTICALS,INC./RIDGEFIELD-2018-BI-019821

PATIENT
  Age: 71 Year
  Sex: Male

DRUGS (2)
  1. PRADAXA [Suspect]
     Active Substance: DABIGATRAN ETEXILATE MESYLATE
     Indication: CEREBROVASCULAR ACCIDENT PROPHYLAXIS
     Route: 065
  2. CLOPIDOGREL [Concomitant]
     Active Substance: CLOPIDOGREL BISULFATE
     Indication: ISCHAEMIC STROKE
     Route: 065

REACTIONS (7)
  - IIIrd nerve paralysis [Recovering/Resolving]
  - Post procedural cellulitis [Recovering/Resolving]
  - Atrial fibrillation [Recovering/Resolving]
  - Death [Fatal]
  - Pneumonia [Recovering/Resolving]
  - Status epilepticus [Unknown]
  - Streptococcal sepsis [Recovering/Resolving]
